FAERS Safety Report 7002711-0 (Version None)
Quarter: 2010Q3

REPORT INFORMATION
  Report Type: 
  Country: None (occurrence: None)
  Receive Date: 20100920
  Receipt Date: 20100910
  Transmission Date: 20110219
  Serious: Yes (Other)
  Sender: FDA-Public Use
  Company Number: MX-PFIZER INC-2010115211

PATIENT
  Age: 37 Year
  Sex: Male
  Weight: 73 kg

DRUGS (1)
  1. CHAMPIX [Suspect]
     Indication: SMOKING CESSATION THERAPY
     Dosage: 1 MG, 2X/DAY
     Route: 048
     Dates: start: 20100816

REACTIONS (5)
  - FLATULENCE [None]
  - HEADACHE [None]
  - HYPOTENSION [None]
  - NAUSEA [None]
  - NIGHTMARE [None]
